FAERS Safety Report 10696299 (Version 1)
Quarter: 2015Q1

REPORT INFORMATION
  Report Type: Spontaneous
  Country: CA (occurrence: CA)
  Receive Date: 20150107
  Receipt Date: 20150107
  Transmission Date: 20150721
  Serious: Yes (Other)
  Sender: FDA-Public Use
  Company Number: CA-MYLANLABS-2015M1000410

PATIENT

DRUGS (2)
  1. FONDAPARINUX [Suspect]
     Active Substance: FONDAPARINUX
     Indication: COAGULOPATHY
     Dosage: 10 MG, QD
     Route: 058
  2. HEPARIN [Suspect]
     Active Substance: HEPARIN SODIUM
     Indication: COAGULOPATHY

REACTIONS (5)
  - Pulmonary embolism [Unknown]
  - Peripheral ischaemia [Unknown]
  - Skin necrosis [Unknown]
  - Arthralgia [Unknown]
  - Thrombocytopenia [Unknown]
